FAERS Safety Report 8264407-7 (Version None)
Quarter: 2012Q2

REPORT INFORMATION
  Report Type: 
  Country: None (occurrence: None)
  Receive Date: 20120406
  Receipt Date: 20120401
  Transmission Date: 20120825
  Serious: Yes (Other)
  Sender: FDA-Public Use
  Company Number: PHHY2012MX028482

PATIENT
  Sex: Male

DRUGS (1)
  1. STALEVO 100 [Suspect]
     Dosage: 1 DF PER DAY
     Dates: start: 20120327, end: 20120401

REACTIONS (2)
  - ROAD TRAFFIC ACCIDENT [None]
  - RADIUS FRACTURE [None]
